FAERS Safety Report 18235209 (Version 1)
Quarter: 2020Q3

REPORT INFORMATION
  Report Type: Spontaneous
  Country: CN (occurrence: CN)
  Receive Date: 20200904
  Receipt Date: 20200904
  Transmission Date: 20201103
  Serious: Yes (Other)
  Sender: FDA-Public Use
  Company Number: CN-FRESENIUS KABI-FK202009113

PATIENT
  Age: 8 Year
  Sex: Female

DRUGS (2)
  1. METHYLPREDNISOLONE (MANUFACTURER UNKNOWN) [Suspect]
     Active Substance: METHYLPREDNISOLONE
     Indication: NEPHROTIC SYNDROME
     Route: 042
     Dates: start: 20180218
  2. PREDNISONE. [Suspect]
     Active Substance: PREDNISONE
     Indication: NEPHROTIC SYNDROME
     Route: 048
     Dates: start: 20180120

REACTIONS (4)
  - Cytomegalovirus infection [Recovered/Resolved]
  - Herpes pharyngitis [Unknown]
  - Oral herpes [Unknown]
  - Peritonitis viral [Recovered/Resolved]

NARRATIVE: CASE EVENT DATE: 20180223
